FAERS Safety Report 23811465 (Version 1)
Quarter: 2024Q2

REPORT INFORMATION
  Report Type: Spontaneous
  Country: US (occurrence: US)
  Receive Date: 20240503
  Receipt Date: 20240503
  Transmission Date: 20240716
  Serious: No
  Sender: FDA-Public Use
  Company Number: US-ELI_LILLY_AND_COMPANY-US202404000752

PATIENT
  Age: 65 Year
  Sex: Female

DRUGS (3)
  1. ADCIRCA [Suspect]
     Active Substance: TADALAFIL
     Indication: Product used for unknown indication
     Dosage: 40 MG, DAILY
     Route: 065
     Dates: start: 202103
  2. AMBRISENTAN [Suspect]
     Active Substance: AMBRISENTAN
     Indication: Pulmonary arterial hypertension
     Dosage: 5 MG, DAILY
     Route: 065
     Dates: start: 201403
  3. AMBRISENTAN [Suspect]
     Active Substance: AMBRISENTAN
     Dosage: 5 MG, UNKNOWN
     Route: 065
     Dates: start: 20070709

REACTIONS (4)
  - Stress [Unknown]
  - Product use issue [Unknown]
  - Lacrimation increased [Unknown]
  - Malaise [Not Recovered/Not Resolved]
